FAERS Safety Report 5096615-0 (Version None)
Quarter: 2006Q3

REPORT INFORMATION
  Report Type: 
  Country: None (occurrence: None)
  Receive Date: 20060831
  Receipt Date: 20060817
  Transmission Date: 20061208
  Serious: Yes (Other)
  Sender: FDA-Public Use
  Company Number: US018152

PATIENT
  Age: 52 Year
  Sex: Male
  Weight: 90.7194 kg

DRUGS (4)
  1. PROVIGIL [Suspect]
     Indication: CIRCADIAN RHYTHM SLEEP DISORDER
     Dosage: 400 MG QD  ORAL
     Route: 048
     Dates: start: 20010101
  2. PROVIGIL [Suspect]
     Indication: SLEEP APNOEA SYNDROME
     Dosage: 400 MG QD  ORAL
     Route: 048
     Dates: start: 20010101
  3. NASONEX [Concomitant]
  4. ASTELIN [Concomitant]

REACTIONS (2)
  - HYPERHIDROSIS [None]
  - SARCOMA [None]
